FAERS Safety Report 15715063 (Version 1)
Quarter: 2018Q4

REPORT INFORMATION
  Report Type: Spontaneous
  Country: IT (occurrence: IT)
  Receive Date: 20181212
  Receipt Date: 20181212
  Transmission Date: 20190205
  Serious: Yes (Congenital Anomaly, Other)
  Sender: FDA-Public Use
  Company Number: PHHY2018IT167682

PATIENT

DRUGS (1)
  1. PARACETAMOL [Suspect]
     Active Substance: ACETAMINOPHEN
     Indication: FOETAL EXPOSURE DURING PREGNANCY
     Dosage: UNK
     Route: 065

REACTIONS (6)
  - Acute right ventricular failure [Unknown]
  - Foetal distress syndrome [Recovered/Resolved]
  - Cardiac failure [Unknown]
  - Foetal exposure during pregnancy [Unknown]
  - Oligohydramnios [Unknown]
  - Ductus arteriosus premature closure [Unknown]
